FAERS Safety Report 4586008-4 (Version None)
Quarter: 2005Q1

REPORT INFORMATION
  Report Type: 
  Country: None (occurrence: None)
  Receive Date: 20050125
  Receipt Date: 20041021
  Transmission Date: 20050727
  Serious: No
  Sender: FDA-Public Use
  Company Number: USA040669532

PATIENT
  Age: 63 Year
  Sex: Female

DRUGS (1)
  1. FORTEO [Suspect]
     Indication: OSTEOPOROSIS
     Dates: start: 20040501

REACTIONS (5)
  - CHROMATURIA [None]
  - INJECTION SITE JOINT REDNESS [None]
  - INJECTION SITE RASH [None]
  - INJECTION SITE SWELLING [None]
  - VASCULAR INJURY [None]
